FAERS Safety Report 23425636 (Version 2)
Quarter: 2024Q1

REPORT INFORMATION
  Report Type: Spontaneous
  Country: US (occurrence: US)
  Receive Date: 20240122
  Receipt Date: 20240220
  Transmission Date: 20240410
  Serious: No
  Sender: FDA-Public Use
  Company Number: US-ELI_LILLY_AND_COMPANY-US202401010686

PATIENT
  Age: 40 Year
  Sex: Male
  Weight: 153.29 kg

DRUGS (35)
  1. TADALAFIL [Suspect]
     Active Substance: TADALAFIL
     Indication: Product used for unknown indication
     Dosage: UNK UNK, UNKNOWN
     Route: 065
  2. REMODULIN [Suspect]
     Active Substance: TREPROSTINIL
     Indication: Pulmonary arterial hypertension
     Dosage: 28 NG/KG/MIN, OTHER (CONTINOUS)
     Route: 058
     Dates: start: 20231108
  3. REMODULIN [Suspect]
     Active Substance: TREPROSTINIL
     Dosage: 36 NG/KG/MIN, OTHER (CONTINUOUS)
     Route: 058
     Dates: start: 20231108
  4. METHOCARBAMOL [Concomitant]
     Active Substance: METHOCARBAMOL
     Indication: Product used for unknown indication
     Dosage: UNK, UNKNOWN
     Route: 065
  5. BUSPIRONE HCL [Concomitant]
     Active Substance: BUSPIRONE HYDROCHLORIDE
     Indication: Product used for unknown indication
     Dosage: UNK, UNKNOWN
     Route: 065
  6. AMMONIUM LACTATE [Concomitant]
     Active Substance: AMMONIUM LACTATE
     Indication: Product used for unknown indication
     Dosage: UNK, UNKNOWN
     Route: 065
  7. ACETAMINOPHEN [Concomitant]
     Active Substance: ACETAMINOPHEN
     Indication: Product used for unknown indication
     Dosage: UNK, UNKNOWN
     Route: 065
  8. SODIUM CHLORIDE [Concomitant]
     Active Substance: SODIUM CHLORIDE
     Indication: Product used for unknown indication
     Dosage: UNK, UNKNOWN
     Route: 065
  9. PANTOPRAZOLE SODIUM [PANTOPRAZOLE SODIUM SESQ [Concomitant]
     Indication: Product used for unknown indication
     Dosage: UNK, UNKNOWN
     Route: 065
  10. KETAMINE HYDROCHLORIDE [Concomitant]
     Active Substance: KETAMINE HYDROCHLORIDE
     Indication: Product used for unknown indication
     Dosage: UNK, UNKNOWN
     Route: 065
  11. LECITHIN [Concomitant]
     Active Substance: LECITHIN
     Indication: Product used for unknown indication
     Dosage: UNK, UNKNOWN
     Route: 065
  12. ALBUTEROL SULFATE [Concomitant]
     Active Substance: ALBUTEROL SULFATE
     Indication: Product used for unknown indication
     Dosage: UNK, UNKNOWN
     Route: 065
  13. SILVER SULFADIAZINE [Concomitant]
     Active Substance: SILVER SULFADIAZINE
     Indication: Product used for unknown indication
     Dosage: UNK, UNKNOWN
     Route: 065
  14. GABAPENTIN [Concomitant]
     Active Substance: GABAPENTIN
     Indication: Product used for unknown indication
     Dosage: UNK, UNKNOWN
     Route: 065
  15. THIAMINE HYDROCHLORIDE [Concomitant]
     Active Substance: THIAMINE HYDROCHLORIDE
     Indication: Product used for unknown indication
     Dosage: UNK, UNKNOWN
     Route: 065
  16. NALOXONE HCL [Concomitant]
     Active Substance: NALOXONE HYDROCHLORIDE
     Indication: Product used for unknown indication
     Dosage: UNK, UNKNOWN
     Route: 065
  17. POTASSIUM CHLORIDE [Concomitant]
     Active Substance: POTASSIUM CHLORIDE
     Indication: Product used for unknown indication
     Dosage: UNK, UNKNOWN
     Route: 065
  18. CLONIDINE HYDROCHLORIDE [Concomitant]
     Active Substance: CLONIDINE HYDROCHLORIDE
     Indication: Product used for unknown indication
     Dosage: UNK, UNKNOWN
     Route: 065
  19. KETOPROFEN [Concomitant]
     Active Substance: KETOPROFEN
     Indication: Product used for unknown indication
     Dosage: UNK, UNKNOWN
     Route: 065
  20. ADEMPAS [Concomitant]
     Active Substance: RIOCIGUAT
     Indication: Product used for unknown indication
     Dosage: UNK, UNKNOWN
     Route: 065
  21. SPIRONOLACTONE [Concomitant]
     Active Substance: SPIRONOLACTONE
     Indication: Product used for unknown indication
     Dosage: UNK, UNKNOWN
     Route: 065
  22. OXYGEN [Concomitant]
     Active Substance: OXYGEN
     Indication: Product used for unknown indication
     Dosage: UNK, UNKNOWN
     Route: 065
  23. SCOPOLAMINE [Concomitant]
     Active Substance: SCOPOLAMINE
     Indication: Product used for unknown indication
     Dosage: UNK, UNKNOWN
     Route: 065
  24. LIDOCAINE HYDROCHLORIDE [Concomitant]
     Active Substance: LIDOCAINE HYDROCHLORIDE
     Indication: Product used for unknown indication
     Dosage: UNK, UNKNOWN
     Route: 065
  25. BUPRENORPHINE [Concomitant]
     Active Substance: BUPRENORPHINE
     Indication: Product used for unknown indication
     Dosage: UNK, UNKNOWN
     Route: 065
  26. FARXIGA [Concomitant]
     Active Substance: DAPAGLIFLOZIN PROPANEDIOL
     Indication: Product used for unknown indication
     Dosage: UNK, UNKNOWN
     Route: 065
  27. MAGNESIUM [Concomitant]
     Active Substance: MAGNESIUM
     Indication: Product used for unknown indication
     Dosage: UNK, UNKNOWN
     Route: 065
  28. AMITRIPTYLINE [Concomitant]
     Active Substance: AMITRIPTYLINE
     Indication: Product used for unknown indication
     Route: 065
  29. POLOXAMER [Concomitant]
     Active Substance: POLOXAMER
     Indication: Product used for unknown indication
     Dosage: UNK, UNKNOWN
     Route: 065
  30. AMBRISENTAN [Concomitant]
     Active Substance: AMBRISENTAN
     Indication: Product used for unknown indication
     Dosage: UNK, UNKNOWN
     Route: 065
  31. BUTRANS [Concomitant]
     Active Substance: BUPRENORPHINE
     Indication: Product used for unknown indication
     Dosage: UNK, UNKNOWN
     Route: 065
  32. TRIAMCINOLONE ACETONIDE [Concomitant]
     Active Substance: TRIAMCINOLONE ACETONIDE
     Indication: Product used for unknown indication
     Dosage: UNK, UNKNOWN
     Route: 065
  33. TORSEMIDE [Concomitant]
     Active Substance: TORSEMIDE
     Indication: Product used for unknown indication
     Dosage: UNK, UNKNOWN
     Route: 065
  34. CLOTRIMAZOLE [Concomitant]
     Active Substance: CLOTRIMAZOLE
     Indication: Product used for unknown indication
     Dosage: UNK, UNKNOWN
     Route: 065
  35. LOPERAMIDE [Concomitant]
     Active Substance: LOPERAMIDE
     Indication: Product used for unknown indication
     Dosage: UNK, UNKNOWN
     Route: 065

REACTIONS (2)
  - Illness [Unknown]
  - Rash [Unknown]
